FAERS Safety Report 7610394-1 (Version None)
Quarter: 2011Q3

REPORT INFORMATION
  Report Type: 
  Country: None (occurrence: None)
  Receive Date: 20110715
  Receipt Date: 20110711
  Transmission Date: 20111222
  Serious: No
  Sender: FDA-Public Use
  Company Number: US-PFIZER INC-2011156073

PATIENT
  Age: 78 Year
  Sex: Male

DRUGS (4)
  1. ALLEGRA [Suspect]
     Indication: HYPERSENSITIVITY
     Dosage: 180 MG, 1X/DAY
     Route: 048
     Dates: start: 20110501, end: 20110601
  2. BENAZEPRIL [Concomitant]
     Dosage: UNK
  3. IBUPROFEN (ADVIL) [Suspect]
     Dosage: UNK
     Dates: start: 20110601, end: 20110601
  4. NIFEDIPINE [Concomitant]
     Dosage: UNK

REACTIONS (3)
  - CHEST DISCOMFORT [None]
  - HYPOAESTHESIA [None]
  - OEDEMA PERIPHERAL [None]
